FAERS Safety Report 9167523 (Version 1)
Quarter: 2013Q1

REPORT INFORMATION
  Report Type: Spontaneous
  Country: US (occurrence: None)
  Receive Date: 20130301
  Receipt Date: 20130301
  Transmission Date: 20140127
  Serious: Yes (Disabling)
  Sender: FDA-Public Use
  Company Number: AXC-2013-000068

PATIENT
  Sex: Female

DRUGS (1)
  1. PYLERA [Suspect]
     Indication: PRODUCT USED FOR UNKNOWN INDICATION
     Dates: start: 2012

REACTIONS (4)
  - Deafness [None]
  - Agitation [None]
  - Faeces discoloured [None]
  - Tinnitus [None]
